FAERS Safety Report 24087052 (Version 1)
Quarter: 2024Q3

REPORT INFORMATION
  Report Type: Spontaneous
  Country: GB (occurrence: GB)
  Receive Date: 20240713
  Receipt Date: 20240713
  Transmission Date: 20241016
  Serious: Yes (Other)
  Sender: TEVA
  Company Number: None

PATIENT
  Sex: Female
  Weight: 85 kg

DRUGS (3)
  1. VERAPAMIL [Suspect]
     Active Substance: VERAPAMIL HYDROCHLORIDE
     Route: 065
  2. FLECAINIDE [Suspect]
     Active Substance: FLECAINIDE
     Route: 065
  3. ASPIRIN [Concomitant]
     Active Substance: ASPIRIN

REACTIONS (4)
  - Visual impairment [Recovered/Resolved]
  - Nausea [Recovered/Resolved]
  - Migraine [Recovered/Resolved]
  - Photophobia [Recovered/Resolved]
